FAERS Safety Report 20157364 (Version 1)
Quarter: 2021Q4

REPORT INFORMATION
  Report Type: Spontaneous
  Country: PR (occurrence: PR)
  Receive Date: 20211207
  Receipt Date: 20211207
  Transmission Date: 20220303
  Serious: No
  Sender: FDA-Public Use
  Company Number: PR-BRISTOL-MYERS SQUIBB COMPANY-BMS-2021-126381

PATIENT
  Age: 52 Year
  Sex: Female
  Weight: 61.23 kg

DRUGS (2)
  1. KENALOG [Suspect]
     Active Substance: TRIAMCINOLONE ACETONIDE
     Indication: Alopecia areata
     Dosage: UNK
     Route: 065
  2. CLOBETASOL [Concomitant]
     Active Substance: CLOBETASOL
     Indication: Alopecia areata
     Dosage: APPLIED DAILY
     Route: 065

REACTIONS (1)
  - Drug ineffective [Unknown]
